FAERS Safety Report 15371679 (Version 1)
Quarter: 2018Q3

REPORT INFORMATION
  Report Type: Spontaneous
  Country: US (occurrence: US)
  Receive Date: 20180905
  Receipt Date: 20180905
  Transmission Date: 20181010
  Serious: No
  Sender: FDA-Public Use
  Company Number: None

PATIENT
  Age: 41 Year
  Sex: Female
  Weight: 80.74 kg

DRUGS (1)
  1. MIRENA [Suspect]
     Active Substance: LEVONORGESTREL
     Dates: start: 20180404

REACTIONS (7)
  - Asthenia [None]
  - Loss of libido [None]
  - Fatigue [None]
  - Vaginal haemorrhage [None]
  - Disturbance in attention [None]
  - Back pain [None]
  - Headache [None]

NARRATIVE: CASE EVENT DATE: 20180905
